FAERS Safety Report 17304765 (Version 3)
Quarter: 2020Q1

REPORT INFORMATION
  Report Type: Report from Study
  Country: US (occurrence: US)
  Receive Date: 20200122
  Receipt Date: 20200312
  Transmission Date: 20200409
  Serious: No
  Sender: FDA-Public Use
  Company Number: NVSC2020US015701

PATIENT
  Age: 45 Year
  Sex: Female

DRUGS (3)
  1. GILENYA [Suspect]
     Active Substance: FINGOLIMOD HYDROCHLORIDE
     Indication: MULTIPLE SCLEROSIS
     Dosage: 0.5 MG, QD
     Route: 048
     Dates: start: 20190103
  2. GILENYA [Suspect]
     Active Substance: FINGOLIMOD HYDROCHLORIDE
     Route: 048
  3. GILENYA [Suspect]
     Active Substance: FINGOLIMOD HYDROCHLORIDE
     Dosage: 0.5 MG, QD
     Route: 048

REACTIONS (7)
  - Swollen tongue [Unknown]
  - Toothache [Unknown]
  - Sensitive skin [Unknown]
  - Skin papilloma [Unknown]
  - Hypoaesthesia oral [Not Recovered/Not Resolved]
  - Oral pain [Unknown]
  - Metamorphopsia [Unknown]

NARRATIVE: CASE EVENT DATE: 20190601
